FAERS Safety Report 6318152-5 (Version None)
Quarter: 2009Q3

REPORT INFORMATION
  Report Type: 
  Country: None (occurrence: None)
  Receive Date: 20090821
  Receipt Date: 20090814
  Transmission Date: 20100115
  Serious: Yes (Disabling)
  Sender: FDA-Public Use
  Company Number: A0797812A

PATIENT
  Age: 65 Year
  Sex: Female
  Weight: 70.5 kg

DRUGS (2)
  1. TYKERB [Suspect]
     Indication: DRUG USE FOR UNKNOWN INDICATION
     Dosage: 5TAB UNKNOWN
     Route: 065
     Dates: start: 20090706
  2. IMODIUM [Concomitant]

REACTIONS (5)
  - ABDOMINAL PAIN [None]
  - CANDIDIASIS [None]
  - DIARRHOEA [None]
  - NAUSEA [None]
  - STOMATITIS [None]
